FAERS Safety Report 4877909-8 (Version None)
Quarter: 2006Q1

REPORT INFORMATION
  Report Type: 
  Country: None (occurrence: None)
  Receive Date: 20060110
  Receipt Date: 20051230
  Transmission Date: 20060701
  Serious: Yes (Other)
  Sender: FDA-Public Use
  Company Number: 2005135947

PATIENT
  Sex: Female
  Weight: 74.8435 kg

DRUGS (3)
  1. DILANTIN [Suspect]
     Indication: CONVULSION
     Dosage: ORAL
     Route: 048
  2. IBUPROFEN [Suspect]
     Indication: OSTEOARTHRITIS
     Dosage: AS NECESSARY
  3. ALL OTHER THERAPEUTIC PRODUCTS (ALL OTHER THERAPEUTIC PRODUCTS) [Suspect]
     Indication: PETIT MAL EPILEPSY

REACTIONS (12)
  - ANTICONVULSANT TOXICITY [None]
  - CHOKING [None]
  - CONDITION AGGRAVATED [None]
  - CONVULSION [None]
  - CYSTITIS [None]
  - EMPHYSEMA [None]
  - GRAND MAL CONVULSION [None]
  - HEPATITIS B [None]
  - KIDNEY INFECTION [None]
  - NEPHROLITHIASIS [None]
  - OSTEOARTHRITIS [None]
  - TRACHEAL DISORDER [None]
